FAERS Safety Report 8222000 (Version 2)
Quarter: 2012Q4

REPORT INFORMATION
  Report Type: 
  Country: US (occurrence: US)
  Receive Date: 20111102
  Receipt Date: 20121206
  Transmission Date: 20130627
  Serious: Yes (Other)
  Sender: FDA-Public Use
  Company Number: US-GILEAD-2011-0045133

PATIENT
  Age: 30 Year
  Sex: Female

DRUGS (3)
  1. EMTRICITABINE/TENOFOVIR DISOPROXIL FUMARATE [Suspect]
     Indication: HIV INFECTION
     Dosage: 1 DF, QD
     Route: 048
     Dates: start: 20100422, end: 20100611
  2. ATRIPLA [Suspect]
     Indication: HIV INFECTION
     Dosage: 1100 mg, QD
     Route: 048
     Dates: start: 20100210, end: 20100422
  3. REYATAZ [Concomitant]
     Indication: HIV INFECTION
     Dosage: 400 mg, QD
     Route: 048
     Dates: start: 20100422, end: 20100611

REACTIONS (1)
  - Abortion spontaneous [Recovered/Resolved]
